FAERS Safety Report 8531001 (Version 3)
Quarter: 2013Q4

REPORT INFORMATION
  Report Type: Spontaneous
  Country: US (occurrence: None)
  Receive Date: 20120326
  Receipt Date: 20131226
  Transmission Date: 20140711
  Serious: Yes (Other)
  Sender: FDA-Public Use
  Company Number: PHEH2011US008602

PATIENT
  Age: 77 Year
  Sex: Female

DRUGS (6)
  1. TASIGNA [Suspect]
     Indication: CHRONIC MYELOID LEUKAEMIA
     Dosage: 200 MG, BID, ORAL, 200 MG, QD, ORAL
     Route: 048
     Dates: start: 20110818, end: 20120201
  2. PLAVIX [Concomitant]
  3. ASPIRIN (ACETYLSALICYLIC ACID) [Concomitant]
  4. ANAGRELIDE HYDROCHLORIDE [Concomitant]
  5. PROCRIT (ERYTHROPOIETIN) [Concomitant]
  6. NEUPOGEN (FILGRASTIM) [Concomitant]

REACTIONS (7)
  - Thrombocytosis [None]
  - Anaemia [None]
  - Cardiac failure congestive [None]
  - Pneumonia [None]
  - Pleural effusion [None]
  - Headache [None]
  - Haemoglobin decreased [None]
